FAERS Safety Report 6745117-1 (Version None)
Quarter: 2010Q2

REPORT INFORMATION
  Report Type: 
  Country: None (occurrence: None)
  Receive Date: 20100527
  Receipt Date: 20100519
  Transmission Date: 20101027
  Serious: Yes (Death)
  Sender: FDA-Public Use
  Company Number: DE-GENENTECH-302148

PATIENT

DRUGS (2)
  1. RITUXIMAB [Suspect]
     Indication: LYMPHOMA
     Dosage: 375 MG/M2, Q28D
     Route: 065
  2. BENDAMUSTINE [Suspect]
     Indication: LYMPHOMA
     Dosage: 90 MG/M2, UNK
     Route: 065

REACTIONS (6)
  - DEATH [None]
  - INFECTION [None]
  - LEUKOPENIA [None]
  - NEOPLASM MALIGNANT [None]
  - NEUTROPENIA [None]
  - NEUTROPENIC SEPSIS [None]
